FAERS Safety Report 26132883 (Version 1)
Quarter: 2025Q4

REPORT INFORMATION
  Report Type: Report from Study
  Country: CA (occurrence: CA)
  Receive Date: 20251209
  Receipt Date: 20251209
  Transmission Date: 20260119
  Serious: Yes (Other)
  Sender: JOHNSON AND JOHNSON
  Company Number: CA-JNJFOC-20250919919

PATIENT
  Age: 51 Year
  Sex: Female

DRUGS (1)
  1. SIMPONI [Suspect]
     Active Substance: GOLIMUMAB
     Indication: Axial spondyloarthritis
     Route: 058

REACTIONS (9)
  - Lower respiratory tract infection [Not Recovered/Not Resolved]
  - Back pain [Unknown]
  - COVID-19 [Unknown]
  - Arthralgia [Unknown]
  - Headache [Unknown]
  - Muscle spasms [Unknown]
  - Diarrhoea [Unknown]
  - Tendon pain [Unknown]
  - Pain in extremity [Unknown]

NARRATIVE: CASE EVENT DATE: 20251101
